FAERS Safety Report 5794688-0 (Version None)
Quarter: 2008Q2

REPORT INFORMATION
  Report Type: 
  Country: None (occurrence: None)
  Receive Date: 20080630
  Receipt Date: 20080618
  Transmission Date: 20081010
  Serious: Yes (Other)
  Sender: FDA-Public Use
  Company Number: CZ-WYE-H04465508

PATIENT
  Age: 52 Year
  Sex: Female

DRUGS (8)
  1. AMIODARONE HCL [Suspect]
     Indication: ATRIAL FIBRILLATION
     Route: 048
     Dates: start: 20050701, end: 20060601
  2. VEROSPIRON [Concomitant]
  3. AUGMENTIN '125' [Concomitant]
  4. PHOSPHOLIPIDS [Concomitant]
  5. DIGOXIN [Concomitant]
  6. LEXAURIN [Concomitant]
  7. FUROSEMID ^DAK^ [Concomitant]
  8. FRAGMIN [Concomitant]

REACTIONS (3)
  - HYPERTHYROIDISM [None]
  - INTERSTITIAL LUNG DISEASE [None]
  - PLEURAL EFFUSION [None]
